FAERS Safety Report 5956878-3 (Version None)
Quarter: 2008Q4

REPORT INFORMATION
  Report Type: 
  Country: None (occurrence: None)
  Receive Date: 20081118
  Receipt Date: 20081106
  Transmission Date: 20090506
  Serious: Yes (Other)
  Sender: FDA-Public Use
  Company Number: US-PFIZER INC-2008074394

PATIENT
  Sex: Male
  Weight: 113.63 kg

DRUGS (3)
  1. VIAGRA [Suspect]
     Indication: ERECTILE DYSFUNCTION
     Dates: start: 20080101
  2. CORTICOSTEROIDS [Concomitant]
  3. PLAVIX [Concomitant]

REACTIONS (5)
  - CORONARY ARTERY DISEASE [None]
  - DERMATITIS ALLERGIC [None]
  - HYPERCHOLESTEROLAEMIA [None]
  - TYPE 2 DIABETES MELLITUS [None]
  - WEIGHT DECREASED [None]
